FAERS Safety Report 8887482 (Version 2)
Quarter: 2013Q1

REPORT INFORMATION
  Report Type: Spontaneous
  Country: US (occurrence: US)
  Receive Date: 20121105
  Receipt Date: 20130204
  Transmission Date: 20140127
  Serious: Yes (Other)
  Sender: FDA-Public Use
  Company Number: PHEH2012US021580

PATIENT
  Sex: Male

DRUGS (1)
  1. COMTAN [Suspect]
     Indication: PARKINSON^S DISEASE
     Dosage: 200 MG, 6QD
     Route: 048

REACTIONS (3)
  - Cerebrovascular accident [Unknown]
  - Paralysis [Unknown]
  - Osteoarthritis [Unknown]
